FAERS Safety Report 10364989 (Version 2)
Quarter: 2014Q4

REPORT INFORMATION
  Report Type: Spontaneous
  Country: US (occurrence: US)
  Receive Date: 20140806
  Receipt Date: 20141222
  Transmission Date: 20150528
  Serious: No
  Sender: FDA-Public Use
  Company Number: US-GLAXOSMITHKLINE-A1052668A

PATIENT
  Age: 78 Year
  Sex: Male

DRUGS (8)
  1. ADVAIR DISKUS [Suspect]
     Active Substance: FLUTICASONE PROPIONATE\SALMETEROL XINAFOATE
     Indication: CHRONIC OBSTRUCTIVE PULMONARY DISEASE
     Dosage: 230/21 MCG
     Route: 055
     Dates: start: 201311, end: 201311
  2. ATENOLOL. [Concomitant]
     Active Substance: ATENOLOL
  3. TAMSULOSIN [Concomitant]
     Active Substance: TAMSULOSIN
  4. TEKTURNA [Concomitant]
     Active Substance: ALISKIREN HEMIFUMARATE
  5. SIMVASTATIN. [Concomitant]
     Active Substance: SIMVASTATIN
  6. ADVAIR DISKUS [Suspect]
     Active Substance: FLUTICASONE PROPIONATE\SALMETEROL XINAFOATE
     Indication: CHRONIC OBSTRUCTIVE PULMONARY DISEASE
     Dosage: UNK, SINGLE
     Dates: start: 201409
  7. VENTOLIN HFA [Suspect]
     Active Substance: ALBUTEROL SULFATE
     Indication: CHRONIC OBSTRUCTIVE PULMONARY DISEASE
     Dosage: UNK, U
  8. RANEXA [Concomitant]
     Active Substance: RANOLAZINE

REACTIONS (5)
  - Drug ineffective [Not Recovered/Not Resolved]
  - Expired product administered [Unknown]
  - Chest discomfort [Recovered/Resolved]
  - Dizziness [Recovered/Resolved]
  - Nausea [Recovered/Resolved]

NARRATIVE: CASE EVENT DATE: 201311
